FAERS Safety Report 10643487 (Version 1)
Quarter: 2014Q4

REPORT INFORMATION
  Report Type: Spontaneous
  Country: US (occurrence: US)
  Receive Date: 20141210
  Receipt Date: 20141210
  Transmission Date: 20150529
  Serious: No
  Sender: FDA-Public Use
  Company Number: US-GILEAD-2014-0125169

PATIENT
  Age: 59 Year
  Sex: Female

DRUGS (8)
  1. SOVALDI [Suspect]
     Active Substance: SOFOSBUVIR
     Indication: HEPATITIS C
     Dosage: UNK
     Route: 065
     Dates: end: 201411
  2. LOSARTAN [Concomitant]
     Active Substance: LOSARTAN
  3. RIBAVIRIN. [Suspect]
     Active Substance: RIBAVIRIN
     Indication: HEPATITIS C
     Dosage: UNK
     Route: 065
     Dates: end: 201411
  4. IRON [Concomitant]
     Active Substance: IRON
  5. VITAMIN C [Concomitant]
     Active Substance: ASCORBIC ACID
  6. INSULIN [Concomitant]
     Active Substance: INSULIN NOS
  7. LIPITOR [Concomitant]
     Active Substance: ATORVASTATIN CALCIUM
  8. FOLIC ACID. [Concomitant]
     Active Substance: FOLIC ACID

REACTIONS (2)
  - Blister [Not Recovered/Not Resolved]
  - Rash [Not Recovered/Not Resolved]
